FAERS Safety Report 23472512 (Version 1)
Quarter: 2024Q1

REPORT INFORMATION
  Report Type: Report from Study
  Country: FR (occurrence: FR)
  Receive Date: 20240202
  Receipt Date: 20240202
  Transmission Date: 20240410
  Serious: Yes (Other)
  Sender: FDA-Public Use
  Company Number: FR-AstraZeneca-2023A054736

PATIENT
  Sex: Female
  Weight: 52 kg

DRUGS (3)
  1. GEMCITABINE HYDROCHLORIDE [Suspect]
     Active Substance: GEMCITABINE HYDROCHLORIDE
     Indication: Biliary neoplasm
  2. CISPLATIN [Suspect]
     Active Substance: CISPLATIN
     Indication: Biliary neoplasm
  3. IMFINZI [Suspect]
     Active Substance: DURVALUMAB
     Indication: Biliary neoplasm
     Dosage: 1500 MG, EVERY 3 WEEKS
     Route: 042
     Dates: start: 20221214

REACTIONS (2)
  - Haematotoxicity [Recovered/Resolved]
  - Product dispensing error [Unknown]
